FAERS Safety Report 7463602-4 (Version None)
Quarter: 2011Q2

REPORT INFORMATION
  Report Type: 
  Country: None (occurrence: None)
  Receive Date: 20110506
  Receipt Date: 20110505
  Transmission Date: 20111010
  Serious: Yes (Life-Threatening, Hospitalization, Other)
  Sender: FDA-Public Use
  Company Number: SE-PFIZER INC-2011055185

PATIENT
  Age: 68 Year
  Sex: Female
  Weight: 69 kg

DRUGS (8)
  1. SYMBICORT [Concomitant]
     Dosage: 160 UG/4.5 UG, 1-2 INHALATIONS X2
     Route: 055
  2. SELOKEN ZOC [Concomitant]
     Dosage: 100 MG, 1X/DAY
  3. SELEXID [Suspect]
     Indication: URINARY TRACT INFECTION
     Dosage: 200 MG, 3X/DAY
     Route: 048
     Dates: start: 20110107
  4. KALEORID [Concomitant]
     Dosage: 750 MG, 2X/DAY
  5. LIPITOR [Suspect]
     Indication: HYPERLIPIDAEMIA
     Dosage: 20 MG, 1X/DAY
     Route: 048
     Dates: start: 20101001, end: 20110201
  6. LIPITOR [Suspect]
     Indication: HYPERTRIGLYCERIDAEMIA
  7. WARAN [Concomitant]
     Dosage: 2.5 MG, 1-1.5 TABLETS A DAY
  8. SPIRONOLACTONE [Concomitant]
     Dosage: 25 MG, 1X/DAY

REACTIONS (5)
  - BLOOD BILIRUBIN INCREASED [None]
  - RHABDOMYOLYSIS [None]
  - URINARY TRACT INFECTION [None]
  - RENAL FAILURE ACUTE [None]
  - ACUTE HEPATIC FAILURE [None]
